FAERS Safety Report 12894518 (Version 1)
Quarter: 2016Q4

REPORT INFORMATION
  Report Type: Spontaneous
  Country: CA (occurrence: CA)
  Receive Date: 20161028
  Receipt Date: 20161028
  Transmission Date: 20170207
  Serious: Yes (Other)
  Sender: FDA-Public Use
  Company Number: CA-PURDUE-DEU-2016-0018377

PATIENT
  Age: 76 Year
  Sex: Female

DRUGS (8)
  1. KETOROLAC [Concomitant]
     Active Substance: KETOROLAC\KETOROLAC TROMETHAMINE
     Indication: LOCAL ANAESTHESIA
     Dosage: 30 MG, SEE TEXT
     Route: 052
  2. EPINEPHRINE. [Concomitant]
     Active Substance: EPINEPHRINE
     Indication: LOCAL ANAESTHESIA
     Dosage: 300 MCG, SEE TEXT
     Route: 052
  3. FENTANYL. [Suspect]
     Active Substance: FENTANYL
     Indication: SPINAL ANAESTHESIA
     Dosage: 150 MCG, SINGLE
     Route: 042
  4. NORMAL SALINE [Concomitant]
     Active Substance: SODIUM CHLORIDE
     Indication: LOCAL ANAESTHESIA
     Dosage: 125 ML, SEE TEXT
     Route: 052
  5. FENTANYL. [Suspect]
     Active Substance: FENTANYL
     Dosage: 10 MCG, SEE TEXT
     Route: 050
  6. BUPIVACAINE. [Concomitant]
     Active Substance: BUPIVACAINE
     Indication: SPINAL ANAESTHESIA
     Dosage: 15 MG, SEE TEXT
  7. ROPIVACAINE [Concomitant]
     Active Substance: ROPIVACAINE
     Indication: LOCAL ANAESTHESIA
     Dosage: 300 MG, SEE TEXT
     Route: 052
  8. NON-PMN MORPHINE SULFATE [Suspect]
     Active Substance: MORPHINE SULFATE
     Indication: LOCAL ANAESTHESIA
     Dosage: 10 MG, SEE TEXT
     Route: 052

REACTIONS (4)
  - Pain [Recovered/Resolved]
  - Sphincter of Oddi dysfunction [Recovered/Resolved]
  - Blood pressure increased [Recovered/Resolved]
  - Sinus bradycardia [Recovered/Resolved]
